FAERS Safety Report 7494945-6 (Version None)
Quarter: 2011Q2

REPORT INFORMATION
  Report Type: 
  Country: None (occurrence: None)
  Receive Date: 20110520
  Receipt Date: 20110509
  Transmission Date: 20111010
  Serious: Yes (Other)
  Sender: FDA-Public Use
  Company Number: TR-UCBSA-032544

PATIENT
  Age: 64 Year
  Sex: Male

DRUGS (2)
  1. LEVOCETIRIZINE DIHYDROCHLORIDE [Suspect]
     Indication: URTICARIA
  2. LEVOCETIRIZINE DIHYDROCHLORIDE [Suspect]
     Dosage: UNKNOWN DOSE

REACTIONS (1)
  - HEPATITIS TOXIC [None]
